FAERS Safety Report 8276180-7 (Version None)
Quarter: 2012Q2

REPORT INFORMATION
  Report Type: 
  Country: None (occurrence: None)
  Receive Date: 20120405
  Receipt Date: 20120326
  Transmission Date: 20120825
  Serious: Yes (Hospitalization)
  Sender: FDA-Public Use
  Company Number: 2012SP016157

PATIENT
  Age: 72 Year
  Sex: Male

DRUGS (4)
  1. IRBESARTAN [Concomitant]
  2. PEG-INTRON [Suspect]
     Indication: PRODUCT USED FOR UNKNOWN INDICATION
     Dosage: UNK
     Dates: start: 20120104, end: 20120110
  3. CENTRAC [Concomitant]
  4. REBETOL [Suspect]
     Indication: PRODUCT USED FOR UNKNOWN INDICATION
     Dosage: QD;UNK
     Dates: start: 20111210, end: 20120110

REACTIONS (5)
  - DYSPNOEA [None]
  - LUNG INFILTRATION [None]
  - TUBERCULIN TEST POSITIVE [None]
  - LUNG DISORDER [None]
  - PYREXIA [None]
